FAERS Safety Report 8764514 (Version 2)
Quarter: 2012Q4

REPORT INFORMATION
  Report Type: 
  Country: US (occurrence: US)
  Receive Date: 20120831
  Receipt Date: 20120920
  Transmission Date: 20130627
  Serious: Yes (Other)
  Sender: FDA-Public Use
  Company Number: US-PFIZER INC-2012214527

PATIENT
  Age: 61 Year
  Sex: Male
  Weight: 113 kg

DRUGS (3)
  1. CELEBREX [Suspect]
     Indication: RHEUMATOID ARTHRITIS
     Dosage: 100 mg, 2x/day
     Route: 048
     Dates: start: 20120720
  2. ARAVA [Concomitant]
     Dosage: UNK
  3. PREDNISONE [Concomitant]
     Dosage: 5 mg, UNK

REACTIONS (1)
  - Rheumatoid arthritis [Unknown]
